FAERS Safety Report 13043959 (Version 1)
Quarter: 2016Q4

REPORT INFORMATION
  Report Type: Spontaneous
  Country: US (occurrence: US)
  Receive Date: 20161220
  Receipt Date: 20161220
  Transmission Date: 20170207
  Serious: Yes (Other)
  Sender: FDA-Public Use
  Company Number: US-ROCHE-1004380

PATIENT
  Age: 69 Year
  Sex: Male
  Weight: 80.81 kg

DRUGS (4)
  1. ZELBORAF [Suspect]
     Active Substance: VEMURAFENIB
     Indication: METASTATIC MALIGNANT MELANOMA
     Route: 065
     Dates: start: 201112, end: 201205
  2. ZELBORAF [Suspect]
     Active Substance: VEMURAFENIB
     Route: 048
  3. ZELBORAF [Suspect]
     Active Substance: VEMURAFENIB
     Dosage: 480 MG IN MORNING AND 240 MG IN EVENING
     Route: 065
     Dates: start: 201209
  4. ZELBORAF [Suspect]
     Active Substance: VEMURAFENIB
     Route: 048
     Dates: start: 201110, end: 201207

REACTIONS (8)
  - Squamous cell carcinoma of skin [Recovered/Resolved]
  - Alopecia [Unknown]
  - Constipation [Unknown]
  - Nausea [Unknown]
  - Vomiting [Recovered/Resolved]
  - Fatigue [Unknown]
  - Weight decreased [Recovered/Resolved]
  - Decreased appetite [Unknown]

NARRATIVE: CASE EVENT DATE: 201205
